FAERS Safety Report 9281246 (Version 1)
Quarter: 2013Q2

REPORT INFORMATION
  Report Type: Spontaneous
  Country: CA (occurrence: CA)
  Receive Date: 20130509
  Receipt Date: 20130509
  Transmission Date: 20140414
  Serious: Yes (Hospitalization, Other)
  Sender: FDA-Public Use
  Company Number: CA-TEVA-403887USA

PATIENT
  Age: 24 Year
  Sex: Male

DRUGS (6)
  1. AZITHROMYCIN [Suspect]
     Dosage: 250 MILLIGRAM DAILY;
     Route: 048
  2. AZITHROMYCIN [Suspect]
     Dosage: 500 MILLIGRAM DAILY;
     Route: 048
  3. ACETAMINOPHEN [Concomitant]
  4. NAPROXEN [Concomitant]
     Dosage: EXTENDED-RELEASE
  5. NYSTATIN [Concomitant]
  6. SALBUTAMOL [Concomitant]

REACTIONS (5)
  - Dyspnoea [Recovered/Resolved]
  - Erythema multiforme [Recovered/Resolved]
  - Mouth ulceration [Recovered/Resolved]
  - Syncope [Recovered/Resolved]
  - Toxic epidermal necrolysis [Recovered/Resolved]
